FAERS Safety Report 8806496 (Version 5)
Quarter: 2013Q1

REPORT INFORMATION
  Report Type: Spontaneous
  Country: US (occurrence: US)
  Receive Date: 20120925
  Receipt Date: 20130315
  Transmission Date: 20140127
  Serious: Yes (Hospitalization, Other)
  Sender: FDA-Public Use
  Company Number: US-009507513-1202USA00056

PATIENT
  Sex: Female

DRUGS (6)
  1. FOSAMAX [Suspect]
     Indication: OSTEOPOROSIS PROPHYLAXIS
     Dosage: 10 MG, UNK
     Route: 048
     Dates: start: 199510, end: 2001
  2. FOSAMAX [Suspect]
     Dosage: 70 MG, UNK
     Route: 048
     Dates: start: 200110, end: 20080205
  3. FOSAMAX [Suspect]
     Indication: OSTEOPOROSIS PROPHYLAXIS
     Dosage: 70 MG, UNK
     Route: 048
     Dates: start: 20080305, end: 20110909
  4. FOSAMAX [Suspect]
     Indication: OSTEOPOROSIS
  5. VITAMIN D (UNSPECIFIED) [Concomitant]
     Dosage: UNK
     Dates: start: 1994
  6. CALCIUM (UNSPECIFIED) [Concomitant]
     Dosage: UNK
     Dates: start: 1994

REACTIONS (24)
  - Femur fracture [Unknown]
  - Intramedullary rod insertion [Unknown]
  - Depression [Not Recovered/Not Resolved]
  - Wound infection staphylococcal [Unknown]
  - Bladder spasm [Not Recovered/Not Resolved]
  - Dysphagia [Not Recovered/Not Resolved]
  - Intramedullary rod insertion [Unknown]
  - Fall [Unknown]
  - Device failure [Unknown]
  - Spinal fracture [Unknown]
  - Foot fracture [Unknown]
  - Hospitalisation [Unknown]
  - Spinal cord compression [Unknown]
  - Spinal osteoarthritis [Unknown]
  - Lumbar spinal stenosis [Unknown]
  - Intervertebral disc degeneration [Unknown]
  - Chronic obstructive pulmonary disease [Unknown]
  - Chronic obstructive pulmonary disease [Unknown]
  - Hyperlipidaemia [Unknown]
  - Gout [Unknown]
  - Confusion postoperative [Unknown]
  - Impacted fracture [Unknown]
  - Device failure [Unknown]
  - Hip arthroplasty [Unknown]
